FAERS Safety Report 7596680-2 (Version None)
Quarter: 2011Q3

REPORT INFORMATION
  Report Type: 
  Country: None (occurrence: None)
  Receive Date: 20110708
  Receipt Date: 20110627
  Transmission Date: 20111222
  Serious: Yes (Life-Threatening, Other)
  Sender: FDA-Public Use
  Company Number: GB-ELI_LILLY_AND_COMPANY-GB201106007480

PATIENT
  Age: 78 Year
  Weight: 47.8 kg

DRUGS (6)
  1. AMITRIPTYLINE HCL [Concomitant]
     Dosage: 10 MG, UNK
     Route: 048
  2. AMLODIPINE [Concomitant]
     Dosage: 5 MG, UNK
     Route: 048
  3. OMEPRAZOLE [Concomitant]
     Dosage: 40 MG, UNK
     Route: 048
  4. TRAMADOL HCL [Concomitant]
     Dosage: UNK, PRN
     Route: 048
  5. FORTEO [Suspect]
     Indication: OSTEOPOROSIS
     Dosage: 20 UG, UNK
     Route: 058
     Dates: start: 20090403, end: 20110301
  6. AZATHIOPRINE [Concomitant]
     Dosage: 100 MG, UNK
     Route: 048

REACTIONS (1)
  - PANCREATIC CARCINOMA METASTATIC [None]
